FAERS Safety Report 12623093 (Version 2)
Quarter: 2016Q3

REPORT INFORMATION
  Report Type: Spontaneous
  Country: US (occurrence: US)
  Receive Date: 20160804
  Receipt Date: 20160816
  Transmission Date: 20161109
  Serious: Yes (Hospitalization)
  Sender: FDA-Public Use
  Company Number: US-VERTEX PHARMACEUTICALS-2016-004623

PATIENT
  Age: 12 Year
  Sex: Female

DRUGS (2)
  1. ORKAMBI [Suspect]
     Active Substance: IVACAFTOR\LUMACAFTOR
     Indication: CYSTIC FIBROSIS
     Dosage: 200-125MG, BID
     Route: 048
     Dates: start: 201603, end: 2016
  2. ORKAMBI [Suspect]
     Active Substance: IVACAFTOR\LUMACAFTOR
     Dosage: 400-250MG, BID
     Route: 048
     Dates: start: 2016

REACTIONS (2)
  - Hospitalisation [Unknown]
  - Malaise [None]

NARRATIVE: CASE EVENT DATE: 201607
